FAERS Safety Report 13489192 (Version 1)
Quarter: 2017Q2

REPORT INFORMATION
  Report Type: Spontaneous
  Country: GR (occurrence: GR)
  Receive Date: 20170427
  Receipt Date: 20170427
  Transmission Date: 20170830
  Serious: Yes (Other)
  Sender: FDA-Public Use
  Company Number: GR-PFIZER INC-2017176191

PATIENT
  Age: 57 Year
  Sex: Female

DRUGS (1)
  1. XANAX [Suspect]
     Active Substance: ALPRAZOLAM
     Dosage: 0.5 MG, 1X/DAY (IN THE NIGHT)

REACTIONS (4)
  - Poor quality sleep [Unknown]
  - Thinking abnormal [Unknown]
  - Restlessness [Unknown]
  - Depressed level of consciousness [Unknown]
